FAERS Safety Report 23411718 (Version 1)
Quarter: 2024Q1

REPORT INFORMATION
  Report Type: Spontaneous
  Country: US (occurrence: None)
  Receive Date: 20240117
  Receipt Date: 20240117
  Transmission Date: 20240410
  Serious: Yes (Death)
  Sender: FDA-Public Use
  Company Number: None

PATIENT
  Age: 87 Year
  Sex: Female

DRUGS (1)
  1. IBRANCE [Suspect]
     Active Substance: PALBOCICLIB
     Indication: Breast cancer female
     Dosage: 75MG ORAL??TAKE 1 TABLET BY MOUTH DAILY FOR 7 DAYS AND 7 DAYS OFF.
     Route: 048
     Dates: start: 201907

REACTIONS (1)
  - Death [None]

NARRATIVE: CASE EVENT DATE: 20231104
